FAERS Safety Report 20256104 (Version 1)
Quarter: 2021Q4

REPORT INFORMATION
  Report Type: Spontaneous
  Country: US (occurrence: US)
  Receive Date: 20211230
  Receipt Date: 20211230
  Transmission Date: 20220304
  Serious: Yes (Hospitalization)
  Sender: FDA-Public Use
  Company Number: US-VERTEX PHARMACEUTICALS-2021-020372

PATIENT
  Sex: Female
  Weight: 3 kg

DRUGS (1)
  1. TRIKAFTA [Suspect]
     Active Substance: ELEXACAFTOR\IVACAFTOR\TEZACAFTOR
     Indication: Cystic fibrosis
     Dosage: 2 TABLETS IN THE MORNING;1 TABLET IN THE EVENING
     Route: 048
     Dates: start: 20200217

REACTIONS (1)
  - Intensive care [Unknown]

NARRATIVE: CASE EVENT DATE: 20200101
